FAERS Safety Report 16712088 (Version 1)
Quarter: 2019Q3

REPORT INFORMATION
  Report Type: Spontaneous
  Country: BR (occurrence: BR)
  Receive Date: 20190816
  Receipt Date: 20190816
  Transmission Date: 20191004
  Serious: Yes (Other)
  Sender: FDA-Public Use
  Company Number: BR-ASTRAZENECA-2019SF16484

PATIENT
  Sex: Female
  Weight: 92 kg

DRUGS (1)
  1. SEROQUEL [Suspect]
     Active Substance: QUETIAPINE FUMARATE
     Indication: BIPOLAR DISORDER
     Dosage: 2 TABLETS OF 300 MG AND 2 TABLETS OF 100MG DAILY (TOTAL DAILY DOSAGE: 800 MG)
     Route: 048
     Dates: start: 2013, end: 201906

REACTIONS (14)
  - Hypertension [Recovered/Resolved]
  - Dizziness [Recovered/Resolved]
  - Tremor [Recovered/Resolved]
  - Compulsions [Recovered/Resolved]
  - Weight increased [Recovering/Resolving]
  - Blood cholesterol increased [Recovered/Resolved]
  - Sedation [Unknown]
  - Exposure during pregnancy [Unknown]
  - Insomnia [Recovered/Resolved]
  - Arrhythmia [Recovered/Resolved]
  - High density lipoprotein abnormal [Recovered/Resolved]
  - Mood altered [Recovered/Resolved]
  - Dyspepsia [Recovered/Resolved]
  - Malaise [Recovered/Resolved]
